FAERS Safety Report 4283823-1 (Version None)
Quarter: 2004Q1

REPORT INFORMATION
  Report Type: 
  Country: None (occurrence: None)
  Receive Date: 20040130
  Receipt Date: 20040116
  Transmission Date: 20041129
  Serious: Yes (Other)
  Sender: FDA-Public Use
  Company Number: US-JNJFOC-20040103280

PATIENT
  Age: 61 Year
  Sex: Female

DRUGS (7)
  1. INFLIXIMAB (INFLIXIMAB, RECOMBINANT) LYOPHILIZED POWDER [Suspect]
     Indication: RHEUMATOID ARTHRITIS
     Dosage: INTRAVENOUS
     Route: 042
     Dates: start: 20010628
  2. METHOTREXATE [Concomitant]
  3. ASPIRIN [Concomitant]
  4. FOLIC ACID [Concomitant]
  5. ENALAPRIL MALEATE [Concomitant]
  6. FOSAMAX [Concomitant]
  7. LIPITOR [Concomitant]

REACTIONS (1)
  - BASAL CELL CARCINOMA [None]
